FAERS Safety Report 7129466-3 (Version None)
Quarter: 2010Q4

REPORT INFORMATION
  Report Type: 
  Country: None (occurrence: None)
  Receive Date: 20101116
  Receipt Date: 20101108
  Transmission Date: 20110411
  Serious: Yes (Other)
  Sender: FDA-Public Use
  Company Number: 021675

PATIENT
  Age: 89 Year
  Sex: Female

DRUGS (1)
  1. ZAROXOLYN [Suspect]

REACTIONS (1)
  - HYPONATRAEMIA [None]
